FAERS Safety Report 11777090 (Version 1)
Quarter: 2015Q4

REPORT INFORMATION
  Report Type: Spontaneous
  Country: FR (occurrence: FR)
  Receive Date: 20151125
  Receipt Date: 20151125
  Transmission Date: 20160304
  Serious: Yes (Other)
  Sender: FDA-Public Use
  Company Number: FR-GE HEALTHCARE MEDICAL DIAGNOSTICS-OMPQ-PR-1511S-3059

PATIENT
  Age: 37 Year
  Sex: Female

DRUGS (4)
  1. OMNIPAQUE [Suspect]
     Active Substance: IOHEXOL
     Indication: DIAGNOSTIC PROCEDURE
  2. LAROXYL [Concomitant]
     Active Substance: AMITRIPTYLINE
     Route: 042
     Dates: start: 20150929
  3. TEGRETOL [Concomitant]
     Active Substance: CARBAMAZEPINE
     Dates: start: 20150929, end: 20150930
  4. OMNIPAQUE [Suspect]
     Active Substance: IOHEXOL
     Indication: HEADACHE
     Dosage: DOSE NOT REPORTED
     Route: 042
     Dates: start: 20150929, end: 20150929

REACTIONS (2)
  - Rash pruritic [Recovered/Resolved]
  - Face oedema [Recovered/Resolved]

NARRATIVE: CASE EVENT DATE: 20150930
